FAERS Safety Report 25515047 (Version 2)
Quarter: 2025Q3

REPORT INFORMATION
  Report Type: Spontaneous
  Country: JP (occurrence: JP)
  Receive Date: 20250703
  Receipt Date: 20250709
  Transmission Date: 20251021
  Serious: Yes (Death)
  Sender: MERCK SHARP & DOHME LLC
  Company Number: JP-009507513-2280388

PATIENT
  Age: 49 Year
  Sex: Male

DRUGS (3)
  1. KEYTRUDA [Suspect]
     Active Substance: PEMBROLIZUMAB
     Indication: Microsatellite instability cancer
     Route: 041
     Dates: start: 2025
  2. GEMCITABINE [Suspect]
     Active Substance: GEMCITABINE
     Dates: start: 2025
  3. CISPLATIN [Suspect]
     Active Substance: CISPLATIN
     Dates: start: 2025

REACTIONS (2)
  - Malignant neoplasm progression [Fatal]
  - Hepatic function abnormal [Unknown]

NARRATIVE: CASE EVENT DATE: 20250101
